FAERS Safety Report 4884496-7 (Version None)
Quarter: 2005Q4

REPORT INFORMATION
  Report Type: 
  Country: None (occurrence: None)
  Receive Date: 20051201
  Receipt Date: 20050913
  Transmission Date: 20060501
  Serious: No
  Sender: FDA-Public Use
  Company Number: 2005PV002061

PATIENT
  Age: 75 Year
  Sex: Female
  Weight: 80.2867 kg

DRUGS (12)
  1. BYETTA [Suspect]
     Indication: DIABETES MELLITUS INSULIN-DEPENDENT
     Dosage: 5 MCG;BID;SC
     Route: 058
     Dates: start: 20050825
  2. LANTUS [Concomitant]
  3. HUMALOG [Concomitant]
  4. NORVASC [Concomitant]
  5. VASOTEC [Concomitant]
  6. COREG [Concomitant]
  7. LIPITOR [Concomitant]
  8. IMDUR [Concomitant]
  9. NITROGLYCERIN [Concomitant]
  10. ASPIRIN [Concomitant]
  11. PREVACID [Concomitant]
  12. TYLENOL ARTHRITIS [Concomitant]

REACTIONS (3)
  - DIZZINESS [None]
  - ERUCTATION [None]
  - NAUSEA [None]
